FAERS Safety Report 4635315-5 (Version None)
Quarter: 2005Q2

REPORT INFORMATION
  Report Type: 
  Country: None (occurrence: None)
  Receive Date: 20050414
  Receipt Date: 20050204
  Transmission Date: 20051028
  Serious: Yes (Hospitalization)
  Sender: FDA-Public Use
  Company Number: PHEH2005US01722

PATIENT
  Age: 71 Year
  Sex: Female
  Weight: 68 kg

DRUGS (7)
  1. DIOVAN [Suspect]
     Indication: HYPERTENSION
     Dosage: 80 MG, QD
     Route: 048
     Dates: start: 20041201
  2. SYNTHROID [Concomitant]
     Indication: HYPOTHYROIDISM
     Dates: start: 19930101
  3. LIPITOR [Concomitant]
     Indication: HYPERCHOLESTEROLAEMIA
     Dosage: 10 MG, QOD
     Dates: start: 19990101
  4. BENTYL [Concomitant]
     Indication: IRRITABLE BOWEL SYNDROME
     Dosage: 20 MG, QHS
     Dates: start: 19950101
  5. ZANTAC [Concomitant]
     Dosage: 150 MG, BID
     Dates: end: 20050202
  6. XANAX [Concomitant]
     Dosage: 0.25 UNK, PRN
  7. FOSAMAX [Concomitant]
     Indication: OSTEOPENIA
     Dosage: 70 MG, QW

REACTIONS (5)
  - DIZZINESS [None]
  - FAECES DISCOLOURED [None]
  - FATIGUE [None]
  - HYPERCHLORHYDRIA [None]
  - NAUSEA [None]
